FAERS Safety Report 5089740-1 (Version None)
Quarter: 2006Q3

REPORT INFORMATION
  Report Type: 
  Country: None (occurrence: None)
  Receive Date: 20060828
  Receipt Date: 20060502
  Transmission Date: 20061208
  Serious: Yes (Other)
  Sender: FDA-Public Use
  Company Number: US-BRISTOL-MYERS SQUIBB COMPANY-13396536

PATIENT
  Age: 85 Year
  Sex: Male

DRUGS (11)
  1. KENALOG-40 [Suspect]
     Indication: MACULAR DEGENERATION
     Route: 031
     Dates: start: 20060427, end: 20060427
  2. TOPROL-XL [Concomitant]
  3. HYDROCHLOROTHIAZIDE [Concomitant]
  4. MONOPRIL [Concomitant]
  5. TRENTAL [Concomitant]
  6. ZOCOR [Concomitant]
  7. XANAX [Concomitant]
  8. OMEPRAZOLE [Concomitant]
  9. MULTI-VITAMIN [Concomitant]
  10. OCUVITE [Concomitant]
  11. ASPIRIN [Concomitant]

REACTIONS (2)
  - BLINDNESS [None]
  - EYE INFLAMMATION [None]
